FAERS Safety Report 9534258 (Version 2)
Quarter: 2013Q4

REPORT INFORMATION
  Report Type: Spontaneous
  Country: US (occurrence: US)
  Receive Date: 20130918
  Receipt Date: 20131023
  Transmission Date: 20140711
  Serious: Yes (Life-Threatening, Hospitalization, Other)
  Sender: FDA-Public Use
  Company Number: US-GLAXOSMITHKLINE-A1041832A

PATIENT
  Age: 36 Year
  Sex: Female
  Weight: 80.9 kg

DRUGS (2)
  1. FLOLAN [Suspect]
     Indication: PULMONARY ARTERIAL HYPERTENSION
     Dosage: 33NGKM CONTINUOUS
     Route: 042
     Dates: start: 20130531
  2. SILDENAFIL [Concomitant]

REACTIONS (1)
  - Catheter removal [Recovered/Resolved]
